FAERS Safety Report 17136540 (Version 1)
Quarter: 2019Q4

REPORT INFORMATION
  Report Type: Spontaneous
  Country: US (occurrence: US)
  Receive Date: 20191210
  Receipt Date: 20191210
  Transmission Date: 20200122
  Serious: No
  Sender: FDA-Public Use
  Company Number: US-SA-2019SA341763

PATIENT
  Sex: Male

DRUGS (1)
  1. PRALUENT [Suspect]
     Active Substance: ALIROCUMAB
     Dosage: 150 MG
     Dates: start: 20191204

REACTIONS (6)
  - Chest pain [Unknown]
  - Ear discomfort [Unknown]
  - Nasal discomfort [Unknown]
  - Palpitations [Unknown]
  - Musculoskeletal pain [Unknown]
  - Hyperhidrosis [Unknown]
